FAERS Safety Report 14721138 (Version 1)
Quarter: 2018Q2

REPORT INFORMATION
  Report Type: Report from Study
  Country: US (occurrence: US)
  Receive Date: 20180405
  Receipt Date: 20180405
  Transmission Date: 20180711
  Serious: Yes (Death, Hospitalization)
  Sender: FDA-Public Use
  Company Number: US-BAYER-2018-061189

PATIENT
  Sex: Female

DRUGS (2)
  1. ADEMPAS [Suspect]
     Active Substance: RIOCIGUAT
     Dosage: UNK
     Dates: start: 20180323
  2. ADEMPAS [Suspect]
     Active Substance: RIOCIGUAT
     Dosage: 1 MG, UNK

REACTIONS (2)
  - Death [Fatal]
  - Hospitalisation [None]
